FAERS Safety Report 5480726-1 (Version None)
Quarter: 2007Q4

REPORT INFORMATION
  Report Type: 
  Country: None (occurrence: None)
  Receive Date: 20071009
  Receipt Date: 20070927
  Transmission Date: 20080405
  Serious: Yes (Other)
  Sender: FDA-Public Use
  Company Number: US-SANOFI-SYNTHELABO-A03200705797

PATIENT
  Sex: Female

DRUGS (5)
  1. COMPAZINE [Concomitant]
     Dosage: UNK
     Route: 065
  2. EMEND [Concomitant]
     Dosage: UNK
     Route: 065
  3. LEUCOVORIN [Concomitant]
     Route: 042
  4. ELOXATIN [Suspect]
     Indication: COLORECTAL CANCER
     Route: 042
     Dates: start: 20070926, end: 20070926
  5. FLUOROURACIL [Concomitant]
     Route: 042

REACTIONS (1)
  - RESPIRATORY DISTRESS [None]
